FAERS Safety Report 4554140-7 (Version None)
Quarter: 2005Q1

REPORT INFORMATION
  Report Type: 
  Country: None (occurrence: None)
  Receive Date: 20050113
  Receipt Date: 20050113
  Transmission Date: 20050727
  Serious: No
  Sender: FDA-Public Use
  Company Number: None

PATIENT
  Sex: Female
  Weight: 68.0396 kg

DRUGS (5)
  1. EFFEXOR XR [Suspect]
     Indication: DEPRESSION
     Dosage: 225 MG DAILY
     Dates: start: 20000310, end: 20050112
  2. EFFEXOR XR [Suspect]
     Indication: GENERALISED ANXIETY DISORDER
     Dosage: 225 MG DAILY
     Dates: start: 20000310, end: 20050112
  3. KLONOPIN [Concomitant]
  4. EFFEXOR [Concomitant]
  5. SYNTHROID [Concomitant]

REACTIONS (7)
  - ABNORMAL DREAMS [None]
  - AFFECT LABILITY [None]
  - DRUG DEPENDENCE [None]
  - NAUSEA [None]
  - SUICIDAL IDEATION [None]
  - VERTIGO [None]
  - VOMITING [None]
